FAERS Safety Report 10058606 (Version 2)
Quarter: 2014Q2

REPORT INFORMATION
  Report Type: Spontaneous
  Country: US (occurrence: US)
  Receive Date: 20140404
  Receipt Date: 20140423
  Transmission Date: 20141212
  Serious: No
  Sender: FDA-Public Use
  Company Number: US-B.I. PHARMACEUTICALS,INC./RIDGEFIELD-2014-BI-13107BP

PATIENT
  Age: 63 Year
  Sex: Female

DRUGS (15)
  1. SPIRIVA [Suspect]
     Indication: BRONCHITIS CHRONIC
     Dosage: 18 MCG
     Route: 055
     Dates: start: 20140307
  2. ADVAIR [Concomitant]
     Dosage: DOSE PER APPLICATION: 500/50;
     Route: 055
  3. SOMA [Concomitant]
     Route: 048
  4. LOSARTAN [Concomitant]
     Indication: HYPERTENSION
     Route: 048
  5. JANUVIA [Concomitant]
     Indication: DIABETES MELLITUS
     Route: 048
  6. CLONAZEPAM [Concomitant]
     Route: 048
  7. CYMBALTA [Concomitant]
     Route: 048
  8. ACTOS [Concomitant]
     Route: 048
  9. DEXILANT [Concomitant]
     Dosage: 120 MG
     Route: 048
  10. PRAVACHOL [Concomitant]
     Route: 048
  11. GLYBURIDE/METFORMIN [Concomitant]
     Route: 048
  12. GABAPENTIN [Concomitant]
     Route: 048
  13. PROVENTIL [Concomitant]
     Route: 055
  14. PROAIR [Concomitant]
     Route: 055
  15. ATROVENT HFA [Concomitant]
     Route: 055

REACTIONS (4)
  - Lip blister [Recovered/Resolved]
  - Off label use [Unknown]
  - Product quality issue [Recovered/Resolved]
  - Product quality issue [Recovered/Resolved]
